FAERS Safety Report 4744070-X (Version None)
Quarter: 2005Q3

REPORT INFORMATION
  Report Type: 
  Country: None (occurrence: None)
  Receive Date: 20050809
  Receipt Date: 20050729
  Transmission Date: 20060218
  Serious: Yes (Other)
  Sender: FDA-Public Use
  Company Number: HQWYE648201AUG05

PATIENT
  Age: 44 Year
  Sex: Female
  Weight: 89.89 kg

DRUGS (4)
  1. PREMARIN [Suspect]
     Indication: MENOPAUSE
     Dosage: 1 TABLET 1X PER 1 DAY, ORAL
     Route: 048
  2. COUMADIN [Concomitant]
  3. LOVENOX [Concomitant]
  4. MAXIDE (TRIAMTERENE/HYDROCHLOROTHIAZIDE) [Concomitant]

REACTIONS (1)
  - SQUAMOUS CELL CARCINOMA [None]
